FAERS Safety Report 15936214 (Version 1)
Quarter: 2019Q1

REPORT INFORMATION
  Report Type: Spontaneous
  Country: US (occurrence: US)
  Receive Date: 20190207
  Receipt Date: 20190207
  Transmission Date: 20190417
  Serious: Yes (Disabling)
  Sender: FDA-Public Use
  Company Number: None

PATIENT
  Age: 38 Year
  Sex: Male
  Weight: 126 kg

DRUGS (2)
  1. CYMBALTA [Suspect]
     Active Substance: DULOXETINE HYDROCHLORIDE
     Indication: MYALGIA
     Dosage: ?          QUANTITY:1 CAPSULE(S);?
     Route: 048
     Dates: start: 20180214, end: 20190201
  2. CYMBALTA [Suspect]
     Active Substance: DULOXETINE HYDROCHLORIDE
     Indication: DEPRESSION
     Dosage: ?          QUANTITY:1 CAPSULE(S);?
     Route: 048
     Dates: start: 20180214, end: 20190201

REACTIONS (13)
  - Hallucination, visual [None]
  - Feeling cold [None]
  - Impaired work ability [None]
  - Feeling abnormal [None]
  - Hot flush [None]
  - Feeling of despair [None]
  - Nightmare [None]
  - Vertigo [None]
  - Hypoaesthesia [None]
  - Withdrawal syndrome [None]
  - Delusion [None]
  - Hallucination, auditory [None]
  - Paraesthesia [None]

NARRATIVE: CASE EVENT DATE: 20190201
